FAERS Safety Report 26174027 (Version 1)
Quarter: 2025Q4

REPORT INFORMATION
  Report Type: Spontaneous
  Country: EU (occurrence: EU)
  Receive Date: 20251218
  Receipt Date: 20251218
  Transmission Date: 20260118
  Serious: Yes (Other)
  Sender: ACCORD
  Company Number: None

PATIENT
  Age: 55 Year
  Sex: Female
  Weight: 114 kg

DRUGS (4)
  1. METHOTREXATE [Suspect]
     Active Substance: METHOTREXATE
     Indication: Rheumatoid arthritis
     Dosage: DAILY DOSE: 20 MG EVERY 7 DAYS
     Dates: start: 202401, end: 202409
  2. NAPROXEN [Suspect]
     Active Substance: NAPROXEN
     Indication: Rheumatoid arthritis
     Dosage: 2 X 500 MG
     Dates: start: 202401
  3. CHOLECALCIFEROL [Concomitant]
     Active Substance: CHOLECALCIFEROL
     Dosage: 500 MU/G, 1 X WEEK
     Dates: start: 202401
  4. FOLIC ACID [Concomitant]
     Active Substance: FOLIC ACID
     Dosage: DAILY DOSE: 5 MG EVERY 7 DAYS
     Dates: start: 202401

REACTIONS (6)
  - Fatigue [Recovered/Resolved]
  - Myalgia [Recovered/Resolved]
  - Arthralgia [Recovered/Resolved]
  - Finger deformity [Recovered/Resolved]
  - Hand deformity [Recovered/Resolved]
  - Labelled drug-drug interaction issue [Unknown]

NARRATIVE: CASE EVENT DATE: 20240901
